FAERS Safety Report 8405130-5 (Version None)
Quarter: 2012Q2

REPORT INFORMATION
  Report Type: 
  Country: None (occurrence: None)
  Receive Date: 20120602
  Receipt Date: 20120521
  Transmission Date: 20120825
  Serious: Yes (Other)
  Sender: FDA-Public Use
  Company Number: IT-VALEANT-2012VX002527

PATIENT
  Sex: Female

DRUGS (5)
  1. CISPLATIN [Suspect]
     Indication: BREAST CANCER
     Dosage: DOSE UNIT:60
     Route: 042
  2. DOXORUBICIN HYDROCHLORIDE [Suspect]
     Indication: BREAST CANCER
     Dosage: DOSE UNIT:25
     Route: 042
  3. TRASTUZUMAB [Suspect]
     Dosage: DOSE UNIT:6
     Route: 042
  4. TRASTUZUMAB [Suspect]
     Indication: BREAST CANCER
     Dosage: DOSE UNIT:8
     Route: 042
  5. FLUOROURACIL [Suspect]
     Indication: BREAST CANCER
     Dosage: DOSE UNIT:200
     Route: 042

REACTIONS (1)
  - SEPSIS [None]
